FAERS Safety Report 14657622 (Version 1)
Quarter: 2018Q1

REPORT INFORMATION
  Report Type: Spontaneous
  Country: US (occurrence: US)
  Receive Date: 20180320
  Receipt Date: 20180320
  Transmission Date: 20180509
  Serious: No
  Sender: FDA-Public Use
  Company Number: US-SHIRE-US201809117

PATIENT
  Sex: Male

DRUGS (4)
  1. 426 (MIDODRINE) [Suspect]
     Active Substance: MIDODRINE
     Indication: PRODUCT USED FOR UNKNOWN INDICATION
     Dosage: 1 TAB, 3X/DAY:TID
     Route: 065
  2. NORTHERA [Suspect]
     Active Substance: DROXIDOPA
     Indication: PRODUCT USED FOR UNKNOWN INDICATION
     Dosage: 100 MG, 3X/DAY:TID
     Route: 065
     Dates: start: 20180123
  3. 426 (MIDODRINE) [Suspect]
     Active Substance: MIDODRINE
     Dosage: 2 TAB, 3X/DAY:TID
     Route: 065
  4. NORTHERA [Suspect]
     Active Substance: DROXIDOPA
     Dosage: 200 MG, 3X/DAY:TID
     Route: 065

REACTIONS (1)
  - Hallucination [Recovering/Resolving]
